FAERS Safety Report 7990823-4 (Version None)
Quarter: 2011Q4

REPORT INFORMATION
  Report Type: 
  Country: None (occurrence: None)
  Receive Date: 20111219
  Receipt Date: 20111207
  Transmission Date: 20120403
  Serious: Yes (Hospitalization, Other)
  Sender: FDA-Public Use
  Company Number: IT-ACTELION-A-CH2011-58074

PATIENT
  Sex: Female
  Weight: 15 kg

DRUGS (3)
  1. MERITENE [Concomitant]
  2. ZAVESCA [Suspect]
     Indication: GLYCOGEN STORAGE DISEASE TYPE II
     Dosage: 150 MG, QD
     Route: 048
     Dates: start: 20110726, end: 20111130
  3. MYOZYME [Concomitant]
     Dosage: UNK
     Dates: start: 20060501

REACTIONS (7)
  - HEADACHE [None]
  - ASPARTATE AMINOTRANSFERASE INCREASED [None]
  - PNEUMONIA [None]
  - PYREXIA [None]
  - RED BLOOD CELL SEDIMENTATION RATE INCREASED [None]
  - ALANINE AMINOTRANSFERASE INCREASED [None]
  - CHEST X-RAY ABNORMAL [None]
